FAERS Safety Report 5767669-0 (Version None)
Quarter: 2008Q2

REPORT INFORMATION
  Report Type: 
  Country: None (occurrence: None)
  Receive Date: 20080612
  Receipt Date: 20080527
  Transmission Date: 20081010
  Serious: Yes (Hospitalization, Other)
  Sender: FDA-Public Use
  Company Number: US-BAYER-200810715BCC

PATIENT
  Age: 39 Year
  Sex: Female
  Weight: 98 kg

DRUGS (6)
  1. MIDOL [Suspect]
     Indication: DYSMENORRHOEA
     Route: 048
     Dates: start: 20030101, end: 20071129
  2. ALEVE [Suspect]
     Indication: DYSMENORRHOEA
     Route: 048
  3. PAMPRIN TAB [Concomitant]
     Indication: DYSMENORRHOEA
  4. NARCOTIC PAIN RELIVER [Concomitant]
  5. TYLENOL [Concomitant]
  6. ANTI-REJECTION MEDICAITON [Concomitant]
     Indication: RENAL TRANSPLANT

REACTIONS (5)
  - ADENOMYOSIS [None]
  - DYSMENORRHOEA [None]
  - FOCAL SEGMENTAL GLOMERULOSCLEROSIS [None]
  - RENAL FAILURE CHRONIC [None]
  - TRANSIENT ISCHAEMIC ATTACK [None]
